FAERS Safety Report 13579813 (Version 1)
Quarter: 2017Q2

REPORT INFORMATION
  Report Type: Spontaneous
  Country: US (occurrence: US)
  Receive Date: 20170525
  Receipt Date: 20170525
  Transmission Date: 20170830
  Serious: Yes (Other)
  Sender: FDA-Public Use
  Company Number: US-CLINIGEN GROUP PLC/ CLINIGEN HEALTHCARE LTD-E2B_00003806

PATIENT
  Age: 28 Year
  Sex: Male

DRUGS (8)
  1. RANITIDINE. [Concomitant]
     Active Substance: RANITIDINE
     Route: 048
  2. CIPROFLOXACIN. [Concomitant]
     Active Substance: CIPROFLOXACIN
     Route: 048
  3. FOSCARNET?SODIUM [Suspect]
     Active Substance: FOSCARNET SODIUM
     Indication: CYTOMEGALOVIRUS INFECTION
     Route: 042
     Dates: start: 19910105, end: 19910119
  4. FOSCARNET?SODIUM [Suspect]
     Active Substance: FOSCARNET SODIUM
     Route: 042
     Dates: start: 19910120
  5. SALBUTAMOL [Concomitant]
     Active Substance: ALBUTEROL
     Route: 055
  6. CEPHALEXIN MONOHYDRATE. [Concomitant]
     Active Substance: CEPHALEXIN MONOHYDRATE
     Route: 048
  7. PENTAMIDINE [Concomitant]
     Active Substance: PENTAMIDINE
     Route: 055
  8. DIDANOSINE. [Concomitant]
     Active Substance: DIDANOSINE
     Route: 065

REACTIONS (8)
  - Leukopenia [Unknown]
  - Hypokalaemia [Unknown]
  - Hypomagnesaemia [Unknown]
  - Hypoalbuminaemia [Unknown]
  - Paraesthesia [Unknown]
  - Burning sensation [Unknown]
  - Diarrhoea [Unknown]
  - Hypocalcaemia [Unknown]

NARRATIVE: CASE EVENT DATE: 199101
